FAERS Safety Report 4748963-9 (Version None)
Quarter: 2005Q3

REPORT INFORMATION
  Report Type: 
  Country: None (occurrence: None)
  Receive Date: 20050819
  Receipt Date: 20050624
  Transmission Date: 20060218
  Serious: Yes (Hospitalization)
  Sender: FDA-Public Use
  Company Number: FRWYE770224JUN05

PATIENT
  Age: 72 Year
  Sex: Male

DRUGS (1)
  1. ENBREL [Suspect]
     Indication: PSORIATIC ARTHROPATHY
     Route: 058
     Dates: start: 20030707, end: 20050603

REACTIONS (3)
  - PARONYCHIA [None]
  - RETINAL ARTERY THROMBOSIS [None]
  - SKIN LESION [None]
